FAERS Safety Report 7201342-7 (Version None)
Quarter: 2010Q4

REPORT INFORMATION
  Report Type: 
  Country: None (occurrence: None)
  Receive Date: 20101215
  Receipt Date: 20101129
  Transmission Date: 20110411
  Serious: Yes (Other)
  Sender: FDA-Public Use
  Company Number: 1000017659

PATIENT
  Age: 73 Year
  Sex: Male

DRUGS (5)
  1. CITALOPRAM HYDROBROMIDE [Suspect]
     Dosage: 20 MG (20 MG, 1 IN 1 D)
  2. RAMPRIL (RAMPRIL) [Concomitant]
  3. BISOPROLOL (BISOPROLOL) (BISPOPROLOL) [Concomitant]
  4. ASPIRIN [Concomitant]
  5. DICLOFENAC/MISOPROSTOL (DICLOFENAC/MISOPROLOL) (DICLOFENAC/MISOPROSOTO [Concomitant]

REACTIONS (5)
  - CONDITION AGGRAVATED [None]
  - DEPRESSION [None]
  - DYSTONIA [None]
  - RESTLESSNESS [None]
  - SUICIDAL IDEATION [None]
